FAERS Safety Report 8269520-6 (Version None)
Quarter: 2012Q2

REPORT INFORMATION
  Report Type: 
  Country: None (occurrence: None)
  Receive Date: 20120409
  Receipt Date: 20120327
  Transmission Date: 20120825
  Serious: Yes (Hospitalization)
  Sender: FDA-Public Use
  Company Number: FR-BAXTER-2012BH006797

PATIENT
  Sex: Female

DRUGS (3)
  1. IFOSFAMIDE [Suspect]
     Indication: ANGIOSARCOMA
     Dosage: DAILY DAY1-DAY3
     Route: 042
     Dates: start: 20120209, end: 20120211
  2. MESNA [Suspect]
     Dates: start: 20120209, end: 20120209
  3. EMEND [Suspect]
     Dosage: DAILY DAY1-DAY3
     Route: 048
     Dates: start: 20120209, end: 20120211

REACTIONS (2)
  - ENCEPHALOPATHY [None]
  - PYREXIA [None]
